FAERS Safety Report 6885897-8 (Version None)
Quarter: 2010Q3

REPORT INFORMATION
  Report Type: 
  Country: None (occurrence: None)
  Receive Date: 20100729
  Receipt Date: 20080320
  Transmission Date: 20110219
  Serious: No
  Sender: FDA-Public Use
  Company Number: US-PFIZER INC-2008026373

PATIENT
  Sex: Female
  Weight: 60.5 kg

DRUGS (5)
  1. CELEBREX [Suspect]
     Indication: OSTEOARTHRITIS
  2. ACTONEL [Concomitant]
  3. ACETAMINOPHEN [Concomitant]
  4. MULTIPLE VITAMINS [Concomitant]
  5. CITRACAL [Concomitant]

REACTIONS (2)
  - PARAESTHESIA [None]
  - SNEEZING [None]
